FAERS Safety Report 7592758-8 (Version None)
Quarter: 2011Q3

REPORT INFORMATION
  Report Type: 
  Country: None (occurrence: None)
  Receive Date: 20110706
  Receipt Date: 20110622
  Transmission Date: 20111222
  Serious: Yes (Hospitalization)
  Sender: FDA-Public Use
  Company Number: US-CELGENEUS-163-21660-11063023

PATIENT
  Sex: Male
  Weight: 72.5 kg

DRUGS (24)
  1. DEXAMETHASONE [Concomitant]
     Dosage: 4 MILLIGRAM
     Route: 048
  2. FAMOTIDINE [Concomitant]
     Dosage: 20 MILLIGRAM
     Route: 048
  3. ACETAMINOPHEN [Concomitant]
     Indication: PAIN
     Dosage: 2
     Route: 048
  4. SODIUM CHLORIDE [Concomitant]
     Dosage: 1000 MILLILITER
     Route: 051
  5. PROCHLORPERAZINE TAB [Concomitant]
     Indication: NAUSEA
     Dosage: 10 MILLIGRAM
     Route: 048
  6. TIZANIDINE HCL [Concomitant]
     Dosage: 4 MILLIGRAM
     Route: 048
  7. OXYCODONE HCL [Concomitant]
     Dosage: 5 MILLIGRAM
     Route: 048
  8. PROCHLORPERAZINE TAB [Concomitant]
     Indication: VOMITING
     Dosage: 2 MILLILITER
     Route: 051
  9. LORTAB [Concomitant]
     Dosage: 10/500MG
     Route: 048
  10. DOCUSATE [Concomitant]
     Indication: CONSTIPATION
     Dosage: 100 MILLIGRAM
     Route: 048
  11. ALBUTEROL SULFATE AUTOHALER [Concomitant]
     Dosage: 2 PUFFS
     Route: 055
  12. CARBOPLATIN [Suspect]
     Indication: NON-SMALL CELL LUNG CANCER
     Route: 051
  13. BROMPHENIRAMINE-PHENYLEPHRINE [Concomitant]
     Dosage: 1
     Route: 048
  14. METOPROLOL TARTRATE [Concomitant]
     Dosage: 50 MILLIGRAM
     Route: 048
  15. SENNA [Concomitant]
     Indication: CONSTIPATION
     Dosage: 2
     Route: 048
  16. SODIUM PHOSPHATE [Concomitant]
     Dosage: 5 MILLILITER
     Route: 048
  17. ABRAXANE [Suspect]
     Indication: NON-SMALL CELL LUNG CANCER
     Dosage: 260 MILLIGRAM/SQ. METER
     Route: 051
     Dates: start: 20110615
  18. ASPIRIN [Concomitant]
     Dosage: 81 MILLIGRAM
     Route: 048
  19. ALPRAZOLAM [Concomitant]
     Dosage: 2 MILLIGRAM
     Route: 048
  20. APREPITANT [Concomitant]
     Dosage: 80+125MG
     Route: 048
  21. OXYCODONE HCL [Concomitant]
     Indication: PAIN
     Dosage: 30 MILLIGRAM
     Route: 048
  22. ALUM/MAG HYDOX-SIMETHICONE [Concomitant]
     Dosage: 30 MILLILITER
     Route: 048
  23. LOVENOX [Concomitant]
     Dosage: 40 MILLIGRAM
     Route: 058
  24. PNEUMOVAX 23 [Concomitant]
     Dosage: .5 MILLILITER
     Route: 030

REACTIONS (6)
  - SYNCOPE [None]
  - DIARRHOEA [None]
  - BLOOD POTASSIUM DECREASED [None]
  - BLOOD PHOSPHORUS DECREASED [None]
  - HAEMOGLOBIN DECREASED [None]
  - DEHYDRATION [None]
